FAERS Safety Report 11492816 (Version 1)
Quarter: 2015Q3

REPORT INFORMATION
  Report Type: Spontaneous
  Country: GB (occurrence: GB)
  Receive Date: 20150911
  Receipt Date: 20150911
  Transmission Date: 20151125
  Serious: Yes (Disabling)
  Sender: FDA-Public Use
  Company Number: GB-009507513-1509GBR004936

PATIENT
  Age: 67 Year
  Sex: Female
  Weight: 58 kg

DRUGS (12)
  1. GAVISCON [Concomitant]
     Active Substance: ALUMINUM HYDROXIDE\MAGNESIUM CARBONATE
     Dosage: 5ML OR 10ML 4 TIMES/DAY
     Dates: start: 20150417
  2. GLICLAZIDE [Concomitant]
     Active Substance: GLICLAZIDE
     Dosage: TAKE TWO TABS IN MORNING 1 LUNCH ONE IN EVENING.
     Dates: start: 20150402
  3. OMEPRAZOLE. [Concomitant]
     Active Substance: OMEPRAZOLE
     Dosage: 1 DF, QD
     Dates: start: 20150402
  4. IBUPROFEN. [Concomitant]
     Active Substance: IBUPROFEN
     Dosage: APPLY 3-4 TIMES/DAY
     Dates: start: 20150417
  5. LISINOPRIL. [Concomitant]
     Active Substance: LISINOPRIL
     Dosage: 1 DF, QD
     Dates: start: 20150402
  6. BENDROFLUMETHIAZIDE [Concomitant]
     Active Substance: BENDROFLUMETHIAZIDE
     Dosage: IN THE MORNING
     Dates: start: 20150402
  7. HYPROMELLOSE [Concomitant]
     Active Substance: HYPROMELLOSES
     Dosage: ONE DROP AS NEEDED, 3 TIMES A DAY
     Dates: start: 20150402
  8. ATORVASTATIN [Concomitant]
     Active Substance: ATORVASTATIN
     Dosage: 1 DF, QD
     Dates: start: 20150402
  9. SITAGLIPTIN PHOSPHATE [Suspect]
     Active Substance: SITAGLIPTIN PHOSPHATE
     Dosage: UNK
     Route: 048
     Dates: start: 20150824
  10. CETIRIZINE HYDROCHLORIDE. [Concomitant]
     Active Substance: CETIRIZINE HYDROCHLORIDE
     Dosage: 1 DF, QD
     Dates: start: 20150813
  11. DERMOL (BENZALKONIUM CHLORIDE (+) CHLORHEXIDINE HYDROCHLORIDE (+) ISOP [Concomitant]
     Dosage: USE AS DIRECTED
     Dates: start: 20150731, end: 20150810
  12. E45 SHOWER [Concomitant]
     Dosage: APPLY AS NEEDED
     Dates: start: 20131010

REACTIONS (3)
  - Gastrooesophageal reflux disease [Recovered/Resolved]
  - Hyperhidrosis [Unknown]
  - Hot flush [Recovered/Resolved]

NARRATIVE: CASE EVENT DATE: 20150824
